FAERS Safety Report 17228383 (Version 1)
Quarter: 2020Q1

REPORT INFORMATION
  Report Type: Spontaneous
  Country: US (occurrence: US)
  Receive Date: 20200103
  Receipt Date: 20200103
  Transmission Date: 20200409
  Serious: Yes (Other)
  Sender: FDA-Public Use
  Company Number: US-ASSERTIO THERAPEUTICS, INC.-US-2019DEP001358

PATIENT

DRUGS (1)
  1. GRALISE [Suspect]
     Active Substance: GABAPENTIN
     Indication: FIBROMYALGIA
     Dosage: 2400 MG, QD
     Route: 048

REACTIONS (4)
  - Product use in unapproved indication [Unknown]
  - Drug titration error [Unknown]
  - Overdose [Unknown]
  - Amnesia [Not Recovered/Not Resolved]
